FAERS Safety Report 7093248-1 (Version None)
Quarter: 2010Q4

REPORT INFORMATION
  Report Type: 
  Country: None (occurrence: None)
  Receive Date: 20101110
  Receipt Date: 20101028
  Transmission Date: 20110411
  Serious: Yes (Hospitalization, Disabling, Other)
  Sender: FDA-Public Use
  Company Number: BR-ASTRAZENECA-2006UW18700

PATIENT
  Age: 63 Year
  Sex: Male
  Weight: 97 kg

DRUGS (14)
  1. CASODEX [Suspect]
     Indication: PROSTATE CANCER
     Route: 048
     Dates: start: 20041202, end: 20051029
  2. CASODEX [Suspect]
     Route: 048
     Dates: end: 20061006
  3. CASODEX [Suspect]
     Route: 048
     Dates: end: 20070208
  4. CASODEX [Suspect]
     Route: 048
     Dates: start: 20070210
  5. CASODEX [Suspect]
     Dosage: BID
     Route: 048
  6. ZOLADEX [Suspect]
     Indication: PROSTATE CANCER
     Route: 058
     Dates: start: 20041202
  7. ZOLADEX [Suspect]
     Route: 058
     Dates: end: 20080201
  8. ZOLADEX [Suspect]
     Route: 058
     Dates: start: 20081106
  9. ZOLADEX [Suspect]
     Route: 058
     Dates: start: 20090122
  10. ZORTRIX [Concomitant]
  11. RIVOTRIL [Concomitant]
     Indication: INSOMNIA
     Dosage: DAILY
     Route: 048
     Dates: start: 20060101, end: 20080101
  12. PASALIX [Concomitant]
     Indication: INSOMNIA
     Route: 048
     Dates: end: 20080101
  13. ZOMETA [Concomitant]
     Indication: BONE DISORDER
     Dosage: ONCE MONTHLY
  14. DESTIBENOL [Concomitant]
     Indication: PROSTATE CANCER

REACTIONS (58)
  - ABDOMINAL PAIN UPPER [None]
  - ADMINISTRATION SITE REACTION [None]
  - AGITATION [None]
  - ALANINE AMINOTRANSFERASE INCREASED [None]
  - ALOPECIA [None]
  - AMNESIA [None]
  - APPLICATION SITE HAEMATOMA [None]
  - APPLICATION SITE PAIN [None]
  - ASPARTATE AMINOTRANSFERASE INCREASED [None]
  - ASTHENIA [None]
  - BACK PAIN [None]
  - BALANCE DISORDER [None]
  - BLADDER PAIN [None]
  - BLOOD ALKALINE PHOSPHATASE INCREASED [None]
  - BLOOD PRESSURE INCREASED [None]
  - CHOLELITHIASIS [None]
  - CHROMATURIA [None]
  - COCCYDYNIA [None]
  - CONSTIPATION [None]
  - DEPRESSION [None]
  - DYSGEUSIA [None]
  - DYSPEPSIA [None]
  - DYSURIA [None]
  - ERECTILE DYSFUNCTION [None]
  - FEAR [None]
  - FOOT FRACTURE [None]
  - GAIT DISTURBANCE [None]
  - HEADACHE [None]
  - HOT FLUSH [None]
  - HYPERHIDROSIS [None]
  - HYPERSENSITIVITY [None]
  - INCREASED APPETITE [None]
  - INSOMNIA [None]
  - LIBIDO DECREASED [None]
  - LOCALISED OEDEMA [None]
  - METASTASES TO BONE [None]
  - NECK PAIN [None]
  - NEPHROLITHIASIS [None]
  - PAIN [None]
  - PAIN IN EXTREMITY [None]
  - PANIC DISORDER [None]
  - PENILE PAIN [None]
  - PLATELET COUNT DECREASED [None]
  - PROSTATIC SPECIFIC ANTIGEN ABNORMAL [None]
  - PROSTATIC SPECIFIC ANTIGEN INCREASED [None]
  - PROSTATITIS [None]
  - PYREXIA [None]
  - RASH [None]
  - RENAL COLIC [None]
  - RENAL MASS [None]
  - RENAL PAIN [None]
  - SEMEN VOLUME DECREASED [None]
  - SKIN DISCOLOURATION [None]
  - UNEVALUABLE EVENT [None]
  - URETHRAL DISORDER [None]
  - WEIGHT DECREASED [None]
  - WEIGHT INCREASED [None]
  - WHITE BLOOD CELL DISORDER [None]
